FAERS Safety Report 9855786 (Version 1)
Quarter: 2014Q1

REPORT INFORMATION
  Report Type: Report from Study
  Country: US (occurrence: US)
  Receive Date: 20140130
  Receipt Date: 20140130
  Transmission Date: 20141002
  Serious: Yes (Hospitalization)
  Sender: FDA-Public Use
  Company Number: PHEH2014US001950

PATIENT
  Sex: Female

DRUGS (2)
  1. GILENYA [Suspect]
     Indication: MULTIPLE SCLEROSIS
  2. AMPYRA [Concomitant]

REACTIONS (4)
  - Musculoskeletal stiffness [Unknown]
  - Gastroenteritis [Unknown]
  - Vomiting [Unknown]
  - Headache [Unknown]
